FAERS Safety Report 4352674-1 (Version None)
Quarter: 2004Q2

REPORT INFORMATION
  Report Type: 
  Country: None (occurrence: None)
  Receive Date: 20040429
  Receipt Date: 20040420
  Transmission Date: 20050107
  Serious: Yes (Hospitalization)
  Sender: FDA-Public Use
  Company Number: S04-USA-02241-01

PATIENT
  Age: 15 Year
  Sex: Female

DRUGS (2)
  1. LEXAPRO [Suspect]
     Indication: DEPRESSION
     Dosage: 20 MG QD PO
     Route: 048
  2. LEXAPRO [Suspect]
     Indication: DEPRESSION
     Dosage: 10 MG QD PO
     Route: 048

REACTIONS (6)
  - CONDITION AGGRAVATED [None]
  - INTENTIONAL SELF-INJURY [None]
  - MANIA [None]
  - PARANOIA [None]
  - SCRATCH [None]
  - SUICIDAL IDEATION [None]
